FAERS Safety Report 10960708 (Version 1)
Quarter: 2015Q1

REPORT INFORMATION
  Report Type: Spontaneous
  Country: ES (occurrence: ES)
  Receive Date: 20150327
  Receipt Date: 20150327
  Transmission Date: 20150721
  Serious: Yes (Other)
  Sender: FDA-Public Use
  Company Number: ES-PFIZER INC-2015105357

PATIENT
  Age: 63 Year
  Sex: Female

DRUGS (1)
  1. NEURONTIN [Suspect]
     Active Substance: GABAPENTIN
     Indication: INTERCOSTAL NEURALGIA
     Dosage: 300 MG, 1X/DAY
     Route: 048
     Dates: start: 20130315, end: 20150307

REACTIONS (1)
  - Glossitis [Not Recovered/Not Resolved]

NARRATIVE: CASE EVENT DATE: 201405
